FAERS Safety Report 16935783 (Version 1)
Quarter: 2019Q4

REPORT INFORMATION
  Report Type: Report from Study
  Country: AU (occurrence: AU)
  Receive Date: 20191018
  Receipt Date: 20191018
  Transmission Date: 20200122
  Serious: Yes (Other)
  Sender: FDA-Public Use
  Company Number: AU-REGENERON PHARMACEUTICALS, INC.-2014-20336

PATIENT

DRUGS (1)
  1. EYLEA [Suspect]
     Active Substance: AFLIBERCEPT
     Indication: AGE-RELATED MACULAR DEGENERATION
     Dosage: 2 MG, LEFT EYE INJECTION EVERY 6 WEEKS
     Route: 031

REACTIONS (4)
  - Blindness transient [Recovered/Resolved]
  - Ocular discomfort [Unknown]
  - Off label use [Unknown]
  - Eye pain [Recovered/Resolved]
